FAERS Safety Report 5592457-8 (Version None)
Quarter: 2008Q1

REPORT INFORMATION
  Report Type: 
  Country: None (occurrence: None)
  Receive Date: 20080111
  Receipt Date: 20080102
  Transmission Date: 20080703
  Serious: Yes (Other)
  Sender: FDA-Public Use
  Company Number: 2007-03564

PATIENT
  Age: 67 Year
  Sex: Female

DRUGS (1)
  1. VELCADE [Suspect]
     Indication: MULTIPLE MYELOMA
     Dates: start: 20060301, end: 20060314

REACTIONS (5)
  - DISEASE PROGRESSION [None]
  - DYSPHAGIA [None]
  - NEUROLOGICAL SYMPTOM [None]
  - PARAPARESIS [None]
  - SENSORY LOSS [None]
